FAERS Safety Report 16619953 (Version 1)
Quarter: 2019Q3

REPORT INFORMATION
  Report Type: Spontaneous
  Country: US (occurrence: US)
  Receive Date: 20190723
  Receipt Date: 20190723
  Transmission Date: 20191004
  Serious: No
  Sender: FDA-Public Use
  Company Number: US-IGSA-SR10007106

PATIENT
  Sex: Female
  Weight: 61.4 kg

DRUGS (4)
  1. GAMMAGARD S/D [Concomitant]
     Active Substance: HUMAN IMMUNOGLOBULIN G
  2. NORMAL SALINE [Concomitant]
     Active Substance: SODIUM CHLORIDE
     Dosage: 1000 ML, UNK
  3. GAMUNEX-C [Suspect]
     Active Substance: HUMAN IMMUNOGLOBULIN G
     Indication: CHRONIC INFLAMMATORY DEMYELINATING POLYRADICULONEUROPATHY
     Dosage: 300 G, Q.WK.
     Dates: start: 20180810, end: 20180921
  4. KETOLAC [Concomitant]
     Active Substance: KETOROLAC TROMETHAMINE
     Dosage: 30 G, Q.WK.
     Dates: start: 20180810

REACTIONS (4)
  - Thirst [Recovered/Resolved]
  - Migraine [Recovered/Resolved]
  - Dermatitis [Recovered/Resolved]
  - Photosensitivity reaction [Recovered/Resolved]
